FAERS Safety Report 21865468 (Version 2)
Quarter: 2023Q1

REPORT INFORMATION
  Report Type: Report from Study
  Country: US (occurrence: US)
  Receive Date: 20230116
  Receipt Date: 20230301
  Transmission Date: 20230418
  Serious: Yes (Other)
  Sender: FDA-Public Use
  Company Number: US-ABBVIE-4269302

PATIENT
  Age: 25 Year
  Sex: Male

DRUGS (2)
  1. HUMIRA [Suspect]
     Active Substance: ADALIMUMAB
     Indication: Crohn^s disease
     Route: 058
  2. HUMIRA [Suspect]
     Active Substance: ADALIMUMAB
     Dosage: EVENT CESSATION DATE AT LEAST SHOULD BE 2023 ONLY.
     Route: 058
     Dates: start: 2023

REACTIONS (1)
  - Intestinal operation [Recovered/Resolved]

NARRATIVE: CASE EVENT DATE: 20230101
